FAERS Safety Report 25119518 (Version 2)
Quarter: 2025Q1

REPORT INFORMATION
  Report Type: Spontaneous
  Country: FR (occurrence: FR)
  Receive Date: 20250325
  Receipt Date: 20250331
  Transmission Date: 20250409
  Serious: Yes (Other)
  Sender: FERRING
  Company Number: FR-JNJFOC-20250324241

PATIENT

DRUGS (5)
  1. DEGARELIX [Suspect]
     Active Substance: DEGARELIX
     Indication: Prostate cancer
     Route: 058
     Dates: start: 20240816, end: 20240916
  2. DEGARELIX [Suspect]
     Active Substance: DEGARELIX
     Route: 058
     Dates: start: 20240715, end: 20240715
  3. ERLEADA [Suspect]
     Active Substance: APALUTAMIDE
     Indication: Prostate cancer
     Route: 048
     Dates: start: 20240919, end: 20241001
  4. LOPERAMIDE [Concomitant]
     Active Substance: LOPERAMIDE
     Indication: Proctitis
     Route: 048
     Dates: start: 20241001, end: 20241017
  5. Ultraproct [Concomitant]
     Indication: Proctitis
     Route: 054
     Dates: start: 20240922, end: 20241017

REACTIONS (1)
  - Neutropenia [Recovered/Resolved]

NARRATIVE: CASE EVENT DATE: 20241001
